FAERS Safety Report 6608501-2 (Version None)
Quarter: 2010Q1

REPORT INFORMATION
  Report Type: 
  Country: None (occurrence: None)
  Receive Date: 20100301
  Receipt Date: 20100216
  Transmission Date: 20100710
  Serious: Yes (Hospitalization)
  Sender: FDA-Public Use
  Company Number: JP-MERCK-1001USA00765

PATIENT
  Age: 69 Year
  Sex: Female

DRUGS (11)
  1. JANUVIA [Suspect]
     Indication: DIABETES MELLITUS
     Route: 048
     Dates: start: 20091215, end: 20091201
  2. PEPCID [Concomitant]
     Route: 048
  3. AMARYL [Suspect]
     Indication: DIABETES MELLITUS
     Route: 048
     Dates: end: 20091201
  4. AMARYL [Suspect]
     Route: 048
  5. MELBIN [Suspect]
     Indication: DIABETES MELLITUS
     Route: 048
  6. PANALDINE [Concomitant]
     Route: 048
  7. ASPIRIN [Concomitant]
     Route: 048
  8. UNIPHYL LA [Concomitant]
     Route: 048
  9. MICARDIS [Concomitant]
     Route: 048
  10. LIPITOR [Concomitant]
     Route: 048
  11. BACAMPICILLIN HYDROCHLORIDE [Concomitant]
     Route: 048

REACTIONS (2)
  - HYPOGLYCAEMIA [None]
  - NASOPHARYNGITIS [None]
